FAERS Safety Report 6589635-8 (Version None)
Quarter: 2010Q1

REPORT INFORMATION
  Report Type: 
  Country: None (occurrence: None)
  Receive Date: 20100212
  Receipt Date: 20100128
  Transmission Date: 20100710
  Serious: Yes (Hospitalization)
  Sender: FDA-Public Use
  Company Number: 231093J10USA

PATIENT
  Age: 50 Year
  Sex: Female
  Weight: 66 kg

DRUGS (6)
  1. REBIF [Suspect]
     Indication: MULTIPLE SCLEROSIS
     Dosage: 44 MCG, 3 IN 1 WEEKS, SUBCUTANEOUS
     Route: 058
     Dates: start: 20090126
  2. ZOCOR [Concomitant]
  3. CYMBALTA [Concomitant]
  4. CALTRATE 600 WITH VITAMIN D (LEKOVIT CA) [Concomitant]
  5. XANAX [Concomitant]
  6. BENICAR [Concomitant]

REACTIONS (1)
  - THYROID CANCER [None]
